FAERS Safety Report 9484321 (Version 1)
Quarter: 2013Q3

REPORT INFORMATION
  Report Type: Spontaneous
  Country: US (occurrence: US)
  Receive Date: 20130828
  Receipt Date: 20130828
  Transmission Date: 20140515
  Serious: Yes (Hospitalization)
  Sender: FDA-Public Use
  Company Number: US-AMGEN-KDL409859

PATIENT
  Age: 63 Year
  Sex: Female

DRUGS (1)
  1. ENBREL [Suspect]
     Indication: RHEUMATOID ARTHRITIS
     Dosage: 50 MG, QWK
     Route: 058

REACTIONS (9)
  - Foot fracture [Unknown]
  - Thyroid neoplasm [Unknown]
  - Fall [Recovered/Resolved]
  - Rotator cuff syndrome [Recovered/Resolved]
  - Abdominal hernia [Recovered/Resolved]
  - Cataract [Recovered/Resolved]
  - Device defective [Recovered/Resolved]
  - Wound infection [Recovered/Resolved]
  - Hypersensitivity [Recovered/Resolved]
